FAERS Safety Report 14976026 (Version 1)
Quarter: 2018Q2

REPORT INFORMATION
  Report Type: Spontaneous
  Country: US (occurrence: US)
  Receive Date: 20180605
  Receipt Date: 20180605
  Transmission Date: 20180711
  Serious: No
  Sender: FDA-Public Use
  Company Number: US-ROCHE-2056454

PATIENT
  Sex: Female

DRUGS (3)
  1. ACTEMRA [Suspect]
     Active Substance: TOCILIZUMAB
     Indication: RHEUMATOID ARTHRITIS
     Route: 065
     Dates: start: 201605, end: 201712
  2. XELJANZ [Concomitant]
     Active Substance: TOFACITINIB CITRATE
  3. METHOTREXATE. [Concomitant]
     Active Substance: METHOTREXATE
     Dosage: ONGOING
     Route: 065
     Dates: start: 201608

REACTIONS (2)
  - Drug effect decreased [Unknown]
  - No adverse event [Unknown]
